FAERS Safety Report 8669032 (Version 5)
Quarter: 2012Q4

REPORT INFORMATION
  Report Type: Report from Study
  Country: DE (occurrence: DE)
  Receive Date: 20120717
  Receipt Date: 20121204
  Transmission Date: 20130627
  Serious: Yes (Hospitalization)
  Sender: FDA-Public Use
  Company Number: DE-TEVA-348532USA

PATIENT
  Age: 75 Year
  Sex: Male
  Weight: 80.8 kg

DRUGS (5)
  1. TREANDA [Suspect]
     Indication: CHRONIC LYMPHOCYTIC LEUKAEMIA
     Dosage: UID/QD
     Route: 042
     Dates: start: 20120605, end: 20120703
  2. RITUXIMAB [Concomitant]
     Dates: start: 20120702, end: 20120730
  3. BISOPROLOL [Concomitant]
     Dosage: half tablet daily
  4. ASS [Concomitant]
     Dosage: 100  Daily;
  5. DIOVAN [Concomitant]
     Dosage: once nightly

REACTIONS (3)
  - Systemic inflammatory response syndrome [Recovered/Resolved]
  - Drug eruption [Recovered/Resolved]
  - Pyrexia [Recovered/Resolved]
